FAERS Safety Report 7054446-6 (Version None)
Quarter: 2010Q4

REPORT INFORMATION
  Report Type: 
  Country: None (occurrence: None)
  Receive Date: 20101020
  Receipt Date: 20101013
  Transmission Date: 20110411
  Serious: Yes (Hospitalization, Other)
  Sender: FDA-Public Use
  Company Number: PHHO2009DE05123

PATIENT
  Sex: Female
  Weight: 78 kg

DRUGS (2)
  1. ACZ885 ACZ+ [Suspect]
     Indication: RHEUMATOID ARTHRITIS
     Dosage: 300MG, MONTHLY
     Route: 058
     Dates: start: 20080229, end: 20090325
  2. METHOTREXATE [Concomitant]

REACTIONS (2)
  - HERPES SIMPLEX [None]
  - SUDDEN HEARING LOSS [None]
